FAERS Safety Report 6244049-5 (Version None)
Quarter: 2009Q2

REPORT INFORMATION
  Report Type: 
  Country: None (occurrence: None)
  Receive Date: 20090625
  Receipt Date: 20070723
  Transmission Date: 20091009
  Serious: Yes (Hospitalization, Other)
  Sender: FDA-Public Use
  Company Number: US-ASTRAZENECA-2006UW25649

PATIENT
  Age: 14253 Day
  Sex: Female
  Weight: 127 kg

DRUGS (17)
  1. SEROQUEL [Suspect]
     Indication: ANGER
     Dosage: 25 MG TO 150 MG
     Route: 048
     Dates: start: 20030221
  2. SEROQUEL [Suspect]
     Indication: INSOMNIA
     Dosage: 25 MG TO 150 MG
     Route: 048
     Dates: start: 20030221
  3. HYDROXYZINE HYDROCHLORIDE [Concomitant]
     Route: 048
     Dates: start: 20071115
  4. ELAVIL [Concomitant]
     Route: 048
     Dates: start: 20071115
  5. METOPROLOL TARTRATE [Concomitant]
     Route: 048
     Dates: start: 20071115
  6. FENOFIBRATE [Concomitant]
     Route: 048
     Dates: start: 20071115
  7. AVALIDE [Concomitant]
     Dosage: 150 MG-12.5 MG, ONCE ADAY
     Route: 048
     Dates: start: 20071115
  8. LANTUS [Concomitant]
     Dosage: 90 UNITS, AT BED TIMES
     Route: 058
     Dates: start: 20071115
  9. NOVOLOG [Concomitant]
     Dosage: 100 UNITS/ML, SLIDING SCALE
     Route: 058
     Dates: start: 20071115
  10. OMEPRAZOLE [Concomitant]
     Route: 048
     Dates: start: 20071115
  11. RANITIDINE HCL [Concomitant]
     Route: 048
     Dates: start: 20071115
  12. PREVACID [Concomitant]
     Route: 048
     Dates: start: 20071115
  13. ASPIRIN [Concomitant]
     Route: 048
     Dates: start: 20071115
  14. OXYCODONE AND ACETAMINOPHEN [Concomitant]
     Dosage: 5-325 MG, 6 HOURLY
     Route: 048
     Dates: start: 20071115
  15. CYCLOBENZAPRINE HCL [Concomitant]
     Route: 048
     Dates: start: 20071115
  16. LEXAPRO [Concomitant]
     Route: 048
     Dates: start: 20030522
  17. AMBIEN [Concomitant]
     Route: 048
     Dates: start: 20030522

REACTIONS (6)
  - AFFECTIVE DISORDER [None]
  - DEPRESSION [None]
  - DIABETES MELLITUS [None]
  - DIABETES MELLITUS INADEQUATE CONTROL [None]
  - HYPERGLYCAEMIA [None]
  - SUICIDAL IDEATION [None]
